FAERS Safety Report 24670744 (Version 1)
Quarter: 2024Q4

REPORT INFORMATION
  Report Type: Spontaneous
  Country: US (occurrence: None)
  Receive Date: 20241127
  Receipt Date: 20241127
  Transmission Date: 20250115
  Serious: Yes (Disabling, Other)
  Sender: Public
  Company Number: None

PATIENT
  Age: 68 Year
  Sex: Male
  Weight: 89.1 kg

DRUGS (4)
  1. DUPIXENT [Suspect]
     Active Substance: DUPILUMAB
     Indication: Eosinophilic oesophagitis
     Dosage: OTHER FREQUENCY : ONCE WEEKLY INJECT;?
     Route: 058
     Dates: start: 20240926, end: 20241122
  2. DUPIXENT [Concomitant]
     Active Substance: DUPILUMAB
  3. REPATHA [Concomitant]
     Active Substance: EVOLOCUMAB
  4. PANTOPRAZOLE SODIUM [Concomitant]
     Active Substance: PANTOPRAZOLE SODIUM

REACTIONS (1)
  - Enthesopathy [None]

NARRATIVE: CASE EVENT DATE: 20241106
